FAERS Safety Report 20505135 (Version 2)
Quarter: 2022Q1

REPORT INFORMATION
  Report Type: Report from Study
  Country: NL (occurrence: NL)
  Receive Date: 20220223
  Receipt Date: 20220303
  Transmission Date: 20220424
  Serious: Yes (Hospitalization)
  Sender: FDA-Public Use
  Company Number: NL-SA-SAC20220107001057

PATIENT

DRUGS (25)
  1. PRALUENT [Suspect]
     Active Substance: ALIROCUMAB
     Indication: Primary hypercholesterolaemia
     Dosage: 75 MG/ML, QOW
     Route: 058
     Dates: start: 20161213, end: 20211208
  2. AMLODIPINE [Concomitant]
     Active Substance: AMLODIPINE BESYLATE
     Indication: Product used for unknown indication
     Dosage: 1 DF, QD
  3. AMLODIPINE [Concomitant]
     Active Substance: AMLODIPINE BESYLATE
     Dosage: 1 DF, QD
  4. AMLODIPINE [Concomitant]
     Active Substance: AMLODIPINE BESYLATE
     Dosage: 1 DF, QD
  5. ATORVASTATIN [Concomitant]
     Active Substance: ATORVASTATIN
     Indication: Product used for unknown indication
  6. ATORVASTATIN [Concomitant]
     Active Substance: ATORVASTATIN
  7. ATORVASTATIN [Concomitant]
     Active Substance: ATORVASTATIN
  8. BARNIDIPINE HYDROCHLORIDE [Concomitant]
     Active Substance: BARNIDIPINE HYDROCHLORIDE
     Indication: Product used for unknown indication
  9. BARNIDIPINE HYDROCHLORIDE [Concomitant]
     Active Substance: BARNIDIPINE HYDROCHLORIDE
  10. BARNIDIPINE HYDROCHLORIDE [Concomitant]
     Active Substance: BARNIDIPINE HYDROCHLORIDE
  11. FERROUS FUMARATE [Concomitant]
     Active Substance: FERROUS FUMARATE
     Indication: Product used for unknown indication
  12. FERROUS FUMARATE [Concomitant]
     Active Substance: FERROUS FUMARATE
  13. FERROUS FUMARATE [Concomitant]
     Active Substance: FERROUS FUMARATE
  14. LEVOTHYROXINE [Concomitant]
     Active Substance: LEVOTHYROXINE
     Indication: Product used for unknown indication
  15. LEVOTHYROXINE [Concomitant]
     Active Substance: LEVOTHYROXINE
  16. LEVOTHYROXINE [Concomitant]
     Active Substance: LEVOTHYROXINE
  17. METOPROLOL [Concomitant]
     Active Substance: METOPROLOL
     Indication: Product used for unknown indication
  18. METOPROLOL [Concomitant]
     Active Substance: METOPROLOL
  19. METOPROLOL [Concomitant]
     Active Substance: METOPROLOL
  20. PANTOPRAZOLE [Concomitant]
     Active Substance: PANTOPRAZOLE
     Indication: Product used for unknown indication
  21. PANTOPRAZOLE [Concomitant]
     Active Substance: PANTOPRAZOLE
  22. PANTOPRAZOLE [Concomitant]
     Active Substance: PANTOPRAZOLE
  23. PAROXETINE [Concomitant]
     Active Substance: PAROXETINE
     Indication: Product used for unknown indication
  24. PAROXETINE [Concomitant]
     Active Substance: PAROXETINE
  25. PAROXETINE [Concomitant]
     Active Substance: PAROXETINE

REACTIONS (6)
  - Cardiovascular disorder [Recovering/Resolving]
  - Intra-abdominal haemorrhage [Recovering/Resolving]
  - Device dislocation [Recovering/Resolving]
  - Vascular injury [Recovering/Resolving]
  - Intestinal perforation [Recovering/Resolving]
  - Aneurysm [Recovering/Resolving]

NARRATIVE: CASE EVENT DATE: 20180101
